FAERS Safety Report 7488577-3 (Version None)
Quarter: 2011Q2

REPORT INFORMATION
  Report Type: 
  Country: None (occurrence: None)
  Receive Date: 20110518
  Receipt Date: 20080812
  Transmission Date: 20111010
  Serious: Yes (Death, Hospitalization)
  Sender: FDA-Public Use
  Company Number: US-BAYER-200830906NA

PATIENT
  Age: 63 Year
  Sex: Male
  Weight: 90 kg

DRUGS (16)
  1. TRASYLOL [Suspect]
     Indication: CARDIAC ANEURYSM
  2. TRASYLOL [Suspect]
     Indication: CORONARY ARTERY BYPASS
     Dosage: 200 ML FOLLOWED BY 50 ML / HOUR INFUSION
     Route: 042
     Dates: start: 20060703, end: 20060703
  3. PLATELETS [Concomitant]
     Dosage: UNK
     Route: 042
     Dates: start: 20060710
  4. LEVAQUIN [Concomitant]
     Dosage: UNK
     Route: 048
     Dates: start: 20060702
  5. LEVAQUIN [Concomitant]
     Dosage: UNK
     Route: 042
     Dates: start: 20060703, end: 20060703
  6. PLAVIX [Concomitant]
     Dosage: UNK
     Route: 048
     Dates: start: 20060702
  7. LOVENOX [Concomitant]
     Dosage: UNK
     Route: 048
     Dates: start: 20060702
  8. ALTACE [Concomitant]
     Dosage: UNK
     Route: 048
     Dates: start: 20060702
  9. TRASYLOL [Suspect]
     Indication: VENTRICULAR SEPTAL DEFECT REPAIR
  10. INTEGRILIN [Concomitant]
     Dosage: UNK
     Route: 048
     Dates: start: 20060702
  11. PLATELETS [Concomitant]
     Dosage: 1 UNIT
     Route: 042
     Dates: start: 20060703
  12. LASIX [Concomitant]
     Dosage: UNK
     Route: 042
     Dates: start: 20060703, end: 20060703
  13. PLATELETS [Concomitant]
     Dosage: UNK
     Route: 042
     Dates: start: 20060713
  14. INSULIN [Concomitant]
     Dosage: UNK
     Route: 042
     Dates: start: 20060703, end: 20060703
  15. FRESH FROZEN PLASMA [Concomitant]
     Dosage: UNK
     Route: 042
     Dates: start: 20060710
  16. ACETYLSALICYLIC ACID SRT [Concomitant]
     Dosage: AS NEEDED
     Route: 048

REACTIONS (3)
  - RENAL FAILURE [None]
  - PAIN [None]
  - INJURY [None]
